FAERS Safety Report 8273820-3 (Version None)
Quarter: 2012Q2

REPORT INFORMATION
  Report Type: 
  Country: None (occurrence: None)
  Receive Date: 20120411
  Receipt Date: 20120403
  Transmission Date: 20120825
  Serious: Yes (Other)
  Sender: FDA-Public Use
  Company Number: PHEH2012US005043

PATIENT

DRUGS (2)
  1. DIOVAN [Suspect]
     Dosage: 40 MG, UNK
  2. APRO [Concomitant]
     Indication: MYOCARDIAL INFARCTION
     Dosage: 75 MG, UNK
     Dates: start: 20030101

REACTIONS (6)
  - FLUID RETENTION [None]
  - JOINT SWELLING [None]
  - WEIGHT INCREASED [None]
  - MASS [None]
  - VISION BLURRED [None]
  - DRUG INEFFECTIVE [None]
